FAERS Safety Report 9883749 (Version 1)
Quarter: 2014Q1

REPORT INFORMATION
  Report Type: Spontaneous
  Country: US (occurrence: US)
  Receive Date: 20140210
  Receipt Date: 20140210
  Transmission Date: 20141002
  Serious: No
  Sender: FDA-Public Use
  Company Number: US-009507513-1402USA000378

PATIENT
  Sex: Female
  Weight: 90.7 kg

DRUGS (1)
  1. IMPLANON [Suspect]
     Indication: CONTRACEPTION
     Dosage: 3 YEAR IMPLANT
     Route: 059
     Dates: start: 201302

REACTIONS (7)
  - Dyspepsia [Unknown]
  - Depression [Unknown]
  - Irritability [Unknown]
  - Weight increased [Unknown]
  - Headache [Unknown]
  - Breast pain [Unknown]
  - Galactorrhoea [Unknown]
